FAERS Safety Report 20175747 (Version 8)
Quarter: 2022Q1

REPORT INFORMATION
  Report Type: Report from Study
  Country: US (occurrence: US)
  Receive Date: 20211213
  Receipt Date: 20220330
  Transmission Date: 20220423
  Serious: Yes (Hospitalization, Other)
  Sender: FDA-Public Use
  Company Number: US-GILEAD-2021-0559393

PATIENT
  Age: 1 Year
  Sex: Female
  Weight: 8.2 kg

DRUGS (9)
  1. AMBRISENTAN [Suspect]
     Active Substance: AMBRISENTAN
     Indication: Pulmonary arterial hypertension
     Dosage: 5 MG, QD
     Route: 048
     Dates: start: 20211102
  2. UPTRAVI [Concomitant]
     Active Substance: SELEXIPAG
  3. SILDENAFIL [Concomitant]
     Active Substance: SILDENAFIL
  4. ASPIRIN [Concomitant]
     Active Substance: ASPIRIN
  5. PULMICORT TURBUHALER [Concomitant]
     Active Substance: BUDESONIDE
  6. BUMEX [Concomitant]
     Active Substance: BUMETANIDE
  7. PROTOXIL [METRONIDAZOLE BENZOATE] [Concomitant]
  8. SPIRONOLACTONE [Concomitant]
     Active Substance: SPIRONOLACTONE
  9. DIVILTAC [Concomitant]

REACTIONS (9)
  - Cardiac operation [Unknown]
  - Pulmonary arterial hypertension [Unknown]
  - Pneumonia [Unknown]
  - Viral infection [Unknown]
  - Dyspnoea [Recovered/Resolved]
  - Fatigue [Not Recovered/Not Resolved]
  - Human metapneumovirus test positive [Not Recovered/Not Resolved]
  - Pulmonary arterial hypertension [Unknown]
  - Off label use [Unknown]
